FAERS Safety Report 26113741 (Version 2)
Quarter: 2025Q4

REPORT INFORMATION
  Report Type: Spontaneous
  Country: JP (occurrence: JP)
  Receive Date: 20251202
  Receipt Date: 20251217
  Transmission Date: 20260118
  Serious: Yes (Hospitalization)
  Sender: ELI LILLY AND COMPANY
  Company Number: JP-ELI_LILLY_AND_COMPANY-JP202511031838

PATIENT
  Age: 62 Year
  Sex: Female
  Weight: 77.8 kg

DRUGS (16)
  1. MOUNJARO [Suspect]
     Active Substance: TIRZEPATIDE
     Indication: Type 2 diabetes mellitus
     Dosage: 2.5 MG
     Route: 058
     Dates: start: 20250414
  2. MOUNJARO [Suspect]
     Active Substance: TIRZEPATIDE
     Indication: Type 2 diabetes mellitus
     Dosage: 2.5 MG
     Route: 058
     Dates: start: 20250414
  3. MOUNJARO [Suspect]
     Active Substance: TIRZEPATIDE
     Indication: Type 2 diabetes mellitus
     Dosage: 2.5 MG
     Route: 058
     Dates: start: 20250414
  4. MOUNJARO [Suspect]
     Active Substance: TIRZEPATIDE
     Indication: Type 2 diabetes mellitus
     Dosage: 2.5 MG
     Route: 058
     Dates: start: 20250414
  5. MOUNJARO [Suspect]
     Active Substance: TIRZEPATIDE
     Dosage: 2.5 MG, WEEKLY (1/W)
     Route: 058
     Dates: end: 20251103
  6. MOUNJARO [Suspect]
     Active Substance: TIRZEPATIDE
     Dosage: 2.5 MG, WEEKLY (1/W)
     Route: 058
     Dates: end: 20251103
  7. MOUNJARO [Suspect]
     Active Substance: TIRZEPATIDE
     Dosage: 2.5 MG, WEEKLY (1/W)
     Route: 058
     Dates: end: 20251103
  8. MOUNJARO [Suspect]
     Active Substance: TIRZEPATIDE
     Dosage: 2.5 MG, WEEKLY (1/W)
     Route: 058
     Dates: end: 20251103
  9. AMLODIPINE BESYLATE\IRBESARTAN [Concomitant]
     Active Substance: AMLODIPINE BESYLATE\IRBESARTAN
     Dosage: 1 DOSAGE FORM, EACH MORNING
     Route: 065
  10. BISOPROLOL [Concomitant]
     Active Substance: BISOPROLOL
     Dosage: 2 MG, DAILY
     Route: 065
  11. AZOSEMIDE [Concomitant]
     Active Substance: AZOSEMIDE
     Dosage: 30 MG, EACH MORNING
     Route: 065
  12. MIRABEGRON [Concomitant]
     Active Substance: MIRABEGRON
     Dosage: 50 MG, EACH EVENING
     Route: 065
  13. MIYA-BM [Concomitant]
     Active Substance: CLOSTRIDIUM BUTYRICUM SPORES STRAIN M-55
     Dosage: 1 DOSAGE FORM, BID
     Route: 065
  14. CRESTOR [Concomitant]
     Active Substance: ROSUVASTATIN CALCIUM
     Dosage: 2.5 MG, EACH MORNING
     Route: 065
  15. LIDOCAINE\TRIBENOSIDE [Concomitant]
     Active Substance: LIDOCAINE\TRIBENOSIDE
     Dosage: UNK, DAILY
     Route: 061
  16. VONOPRAZAN FUMARATE [Concomitant]
     Active Substance: VONOPRAZAN FUMARATE
     Dosage: 10 MG, EACH MORNING
     Route: 065

REACTIONS (3)
  - Mesenteric panniculitis [Recovered/Resolved]
  - Off label use [Unknown]
  - Product dose omission issue [Unknown]

NARRATIVE: CASE EVENT DATE: 20251103
